FAERS Safety Report 6601202-6 (Version None)
Quarter: 2010Q1

REPORT INFORMATION
  Report Type: 
  Country: None (occurrence: None)
  Receive Date: 20100224
  Receipt Date: 20100224
  Transmission Date: 20100710
  Serious: No
  Sender: FDA-Public Use
  Company Number: None

PATIENT
  Age: 81 Year
  Sex: Female
  Weight: 58.9676 kg

DRUGS (1)
  1. ZOLEDRONIC ACID [Suspect]

REACTIONS (3)
  - DRY MOUTH [None]
  - ORAL PAIN [None]
  - TONGUE COATED [None]
